FAERS Safety Report 24397609 (Version 3)
Quarter: 2025Q3

REPORT INFORMATION
  Report Type: Spontaneous
  Country: CN (occurrence: CN)
  Receive Date: 20241004
  Receipt Date: 20250809
  Transmission Date: 20251021
  Serious: Yes (Hospitalization)
  Sender: ALEXION PHARMACEUTICALS
  Company Number: CN-ASTRAZENECA-202409CHN008053CN

PATIENT
  Age: 58 Year
  Sex: Male
  Weight: 67 kg

DRUGS (2)
  1. DAPAGLIFLOZIN [Suspect]
     Active Substance: DAPAGLIFLOZIN
     Indication: Diabetes mellitus
     Dosage: 10 MILLIGRAM, QD
     Dates: start: 20240801, end: 20240908
  2. ACARBOSE [Concomitant]
     Active Substance: ACARBOSE
     Indication: Blood glucose decreased

REACTIONS (4)
  - Genital erythema [Unknown]
  - Genital swelling [Unknown]
  - Pruritus genital [Unknown]
  - Urinary tract infection [Unknown]

NARRATIVE: CASE EVENT DATE: 20240904
